FAERS Safety Report 7433253-6 (Version None)
Quarter: 2011Q2

REPORT INFORMATION
  Report Type: 
  Country: None (occurrence: None)
  Receive Date: 20110415
  Receipt Date: 20110401
  Transmission Date: 20111010
  Serious: Yes (Congenital Anomaly)
  Sender: FDA-Public Use
  Company Number: 030661

PATIENT

DRUGS (2)
  1. CARBAMAZEPINE [Concomitant]
  2. LEVETIRACETAM [Suspect]
     Dosage: (TOTAL DAILY DOSE: 1000 (UNITS UNSPECIFIED) TRANSPLACENTAL)
     Route: 064

REACTIONS (2)
  - MATERNAL DRUGS AFFECTING FOETUS [None]
  - CATARACT CONGENITAL [None]
